FAERS Safety Report 4573941-2 (Version None)
Quarter: 2005Q1

REPORT INFORMATION
  Report Type: 
  Country: None (occurrence: None)
  Receive Date: 20050204
  Receipt Date: 20050122
  Transmission Date: 20050727
  Serious: Yes (Disabling)
  Sender: FDA-Public Use
  Company Number: GXKR2004DE00705

PATIENT
  Age: 66 Year
  Sex: Male

DRUGS (3)
  1. LISINOPRIL [Suspect]
     Indication: HYPERTENSION
     Dosage: SEE IMAGE
     Route: 048
     Dates: start: 20030415, end: 20031014
  2. LISINOPRIL [Suspect]
     Indication: HYPERTENSION
     Dosage: SEE IMAGE
     Route: 048
     Dates: start: 20031015
  3. DYTIDE H                             (HYDROCHLOROTHIAZIDE, TRIAMTERENE [Concomitant]

REACTIONS (9)
  - CARPAL TUNNEL DECOMPRESSION [None]
  - IMMOBILE [None]
  - INFLAMMATION [None]
  - NODULE [None]
  - OEDEMA PERIPHERAL [None]
  - SENSATION OF FOREIGN BODY [None]
  - SENSORY LOSS [None]
  - SWELLING FACE [None]
  - TENDON DISORDER [None]
